FAERS Safety Report 5110616-5 (Version None)
Quarter: 2006Q3

REPORT INFORMATION
  Report Type: 
  Country: None (occurrence: None)
  Receive Date: 20060921
  Receipt Date: 20060327
  Transmission Date: 20061208
  Serious: Yes (Hospitalization, Other)
  Sender: FDA-Public Use
  Company Number: US-ABBOTT-06P-163-0329428-00

PATIENT
  Sex: Female
  Weight: 72.64 kg

DRUGS (6)
  1. SYNTHROID [Suspect]
     Indication: HYPOTHYROIDISM
     Route: 048
     Dates: start: 20010101
  2. ANCOVERT [Suspect]
     Indication: DRUG USE FOR UNKNOWN INDICATION
  3. RED YEAST RICE [Suspect]
     Indication: DRUG USE FOR UNKNOWN INDICATION
  4. MULTI-VITAMIN [Suspect]
     Indication: DRUG USE FOR UNKNOWN INDICATION
  5. CLOPIDOGREL BISULFATE [Concomitant]
     Indication: DRUG USE FOR UNKNOWN INDICATION
  6. ASPIRIN [Concomitant]
     Indication: DRUG USE FOR UNKNOWN INDICATION

REACTIONS (6)
  - CONFUSIONAL STATE [None]
  - DIZZINESS [None]
  - HYPOAESTHESIA [None]
  - MIGRAINE [None]
  - TRANSIENT ISCHAEMIC ATTACK [None]
  - VESTIBULAR NEURONITIS [None]
